FAERS Safety Report 6130349-6 (Version None)
Quarter: 2009Q1

REPORT INFORMATION
  Report Type: 
  Country: None (occurrence: None)
  Receive Date: 20090324
  Receipt Date: 20090318
  Transmission Date: 20090719
  Serious: No
  Sender: FDA-Public Use
  Company Number: US-B.I. PHARMACEUTICALS,INC./RIDGEFIELD-2009-BP-03416BP

PATIENT
  Sex: Male

DRUGS (3)
  1. SPIRIVA [Suspect]
     Indication: CHRONIC OBSTRUCTIVE PULMONARY DISEASE
     Dosage: 18MCG
     Route: 055
     Dates: start: 20080901, end: 20081001
  2. THYROID PILLS [Concomitant]
     Indication: HYPOTHYROIDISM
  3. HEART PILLS [Concomitant]
     Indication: CARDIAC DISORDER

REACTIONS (2)
  - DRUG INEFFECTIVE [None]
  - EYE IRRITATION [None]
